FAERS Safety Report 10272902 (Version 1)
Quarter: 2014Q2

REPORT INFORMATION
  Report Type: Spontaneous
  Country: US (occurrence: None)
  Receive Date: 20140627
  Receipt Date: 20140627
  Transmission Date: 20141212
  Serious: No
  Sender: FDA-Public Use
  Company Number: None

PATIENT
  Age: 45 Year
  Sex: Male

DRUGS (1)
  1. ENALAPRIL [Suspect]
     Indication: HYPERTENSION
     Dosage: 30. ORAL, QD
     Route: 048
     Dates: start: 20140609, end: 20140616

REACTIONS (3)
  - Hypoaesthesia oral [None]
  - Tongue discolouration [None]
  - Tongue pruritus [None]
